FAERS Safety Report 12170254 (Version 2)
Quarter: 2016Q2

REPORT INFORMATION
  Report Type: Other
  Country: GB (occurrence: GB)
  Receive Date: 20160311
  Receipt Date: 20160411
  Transmission Date: 20160815
  Serious: Yes (Death)
  Sender: FDA-Public Use
  Company Number: GB-CIPLA LTD.-2016GB02227

PATIENT

DRUGS (2)
  1. CITALOPRAM [Suspect]
     Active Substance: CITALOPRAM HYDROBROMIDE
     Indication: ANXIETY
     Dosage: 60 MG, QD
     Route: 065
     Dates: start: 20151001
  2. HEROIN [Suspect]
     Active Substance: DIACETYLMORPHINE
     Indication: DRUG ABUSE
     Dosage: UNK
     Route: 065

REACTIONS (3)
  - Sleep apnoea syndrome [Fatal]
  - Arrhythmia [Not Recovered/Not Resolved]
  - Toxicity to various agents [Not Recovered/Not Resolved]
